FAERS Safety Report 7370698-7 (Version None)
Quarter: 2011Q1

REPORT INFORMATION
  Report Type: 
  Country: None (occurrence: None)
  Receive Date: 20110323
  Receipt Date: 20110308
  Transmission Date: 20110831
  Serious: No
  Sender: FDA-Public Use
  Company Number: US-BAYER-2011-022885

PATIENT
  Sex: Female
  Weight: 68 kg

DRUGS (6)
  1. LUTEIN [Concomitant]
     Dosage: UNK
  2. ONE A DAY WOMEN'S 50+ ADVANTAGE [Concomitant]
     Dosage: UNK
  3. CALCIUM [Concomitant]
  4. UNCODEABLE ^UNCLASSIFIABLE^ [Concomitant]
     Dosage: UNK UNK, PRN
  5. ALEVE (CAPLET) [Suspect]
     Indication: ANALGESIC THERAPY
     Dosage: 1 DF, QD, UNKNOWN BOTTLE COUNT
     Route: 048
     Dates: start: 20090101
  6. VITAMIN D [Concomitant]
     Dosage: UNK

REACTIONS (1)
  - NO ADVERSE EVENT [None]
